FAERS Safety Report 24400709 (Version 2)
Quarter: 2025Q3

REPORT INFORMATION
  Report Type: Report from Study
  Country: US (occurrence: US)
  Receive Date: 20241006
  Receipt Date: 20250809
  Transmission Date: 20251021
  Serious: Yes (Other)
  Sender: ALEXION PHARMACEUTICALS
  Company Number: US-AstraZeneca-CH-00710528A

PATIENT
  Sex: Female

DRUGS (3)
  1. SAPHNELO [Suspect]
     Active Substance: ANIFROLUMAB-FNIA
     Dosage: 300 MILLIGRAM, Q4W
  2. AUGMENTIN [Concomitant]
     Active Substance: AMOXICILLIN\CLAVULANATE POTASSIUM
     Route: 065
  3. FENTANYL [Concomitant]
     Active Substance: FENTANYL
     Route: 065

REACTIONS (6)
  - Ingrowing nail [Unknown]
  - Nail infection [Recovered/Resolved]
  - Gastrointestinal inflammation [Unknown]
  - Systemic lupus erythematosus [Not Recovered/Not Resolved]
  - Insurance issue [Unknown]
  - Abdominal pain [Recovered/Resolved]
